FAERS Safety Report 7120250-3 (Version None)
Quarter: 2010Q4

REPORT INFORMATION
  Report Type: 
  Country: None (occurrence: None)
  Receive Date: 20101123
  Receipt Date: 20101116
  Transmission Date: 20110411
  Serious: Yes (Other)
  Sender: FDA-Public Use
  Company Number: FR-MERCK-1009FRA00019

PATIENT

DRUGS (4)
  1. ISENTRESS [Suspect]
     Indication: HIV INFECTION
     Route: 048
  2. ENFUVIRTIDE [Suspect]
     Route: 058
  3. ETRAVIRINE [Suspect]
     Route: 048
  4. LAMIVUDINE [Suspect]
     Route: 048

REACTIONS (1)
  - VIROLOGIC FAILURE [None]
